FAERS Safety Report 21177830 (Version 2)
Quarter: 2022Q3

REPORT INFORMATION
  Report Type: Report from Study
  Country: EG (occurrence: EG)
  Receive Date: 20220805
  Receipt Date: 20220810
  Transmission Date: 20221027
  Serious: Yes (Other)
  Sender: FDA-Public Use
  Company Number: EG-NOVARTISPH-NVSC2022EG177064

PATIENT
  Sex: Female

DRUGS (12)
  1. KISQALI [Suspect]
     Active Substance: RIBOCICLIB
     Indication: Breast cancer metastatic
     Dosage: 600 MG, QD (200 MG 3 TABLET PER DAY FOR 3 WEEKS ON AND ONE WEEK OFF)
     Route: 048
     Dates: start: 202008
  2. KISQALI [Suspect]
     Active Substance: RIBOCICLIB
     Indication: Metastases to spine
     Dosage: 2 DOSAGE FORM, QD (2 TABLETS DAILY FOR THE LAST TWO MONTHS)
     Route: 048
     Dates: end: 20220730
  3. FEMARA [Suspect]
     Active Substance: LETROZOLE
     Indication: Breast cancer metastatic
     Dosage: 2.5 MG, QD
     Route: 048
     Dates: start: 202008, end: 202108
  4. FEMARA [Suspect]
     Active Substance: LETROZOLE
     Indication: Metastases to spine
  5. FASLODEX [Concomitant]
     Active Substance: FULVESTRANT
     Indication: Breast cancer metastatic
     Dosage: UNK, QMO
     Route: 030
     Dates: start: 2020, end: 20220701
  6. FASLODEX [Concomitant]
     Active Substance: FULVESTRANT
     Dosage: UNK, QMO (ONCE EVERY MONTH)
     Route: 065
     Dates: end: 20220730
  7. XGEVA [Concomitant]
     Active Substance: DENOSUMAB
     Indication: Osteoporosis
     Dosage: ONCE EVERY 6 MONTHS AND THEN ONCE MONTHLY
     Route: 058
     Dates: start: 2020
  8. VITAMIN C [Concomitant]
     Active Substance: ASCORBIC ACID
     Indication: Supplementation therapy
     Dosage: UNK
     Route: 065
     Dates: start: 2020
  9. VITAMIN B [Concomitant]
     Active Substance: VITAMIN B
     Indication: Supplementation therapy
     Dosage: UNK
     Route: 065
     Dates: start: 2020
  10. VITAMIN D [Concomitant]
     Active Substance: VITAMIN D NOS
     Indication: Supplementation therapy
     Dosage: UNK, BIW
     Route: 065
     Dates: start: 2020
  11. OMEGA 3 [Concomitant]
     Active Substance: CAPSAICIN
     Indication: Supplementation therapy
     Dosage: UNK
     Route: 065
     Dates: start: 2020
  12. PANADOL [Concomitant]
     Active Substance: ACETAMINOPHEN
     Indication: Bone pain
     Dosage: UNK UNK, PRN
     Route: 048
     Dates: start: 2020

REACTIONS (13)
  - Renal impairment [Unknown]
  - Blood uric acid increased [Unknown]
  - Blood creatinine increased [Unknown]
  - Cough [Recovering/Resolving]
  - Breast cancer metastatic [Unknown]
  - Malignant neoplasm progression [Unknown]
  - Drug ineffective [Not Recovered/Not Resolved]
  - Abdominal pain upper [Recovering/Resolving]
  - Fatigue [Recovering/Resolving]
  - Renal pain [Recovering/Resolving]
  - Hypotension [Recovered/Resolved]
  - Bone pain [Not Recovered/Not Resolved]
  - Decreased appetite [Recovered/Resolved]

NARRATIVE: CASE EVENT DATE: 20200101
